FAERS Safety Report 6181125-X (Version None)
Quarter: 2009Q2

REPORT INFORMATION
  Report Type: 
  Country: None (occurrence: None)
  Receive Date: 20090504
  Receipt Date: 20090504
  Transmission Date: 20091009
  Serious: Yes (Other)
  Sender: FDA-Public Use
  Company Number: None

PATIENT
  Age: 33 Year
  Sex: Female
  Weight: 67.1324 kg

DRUGS (2)
  1. OCELLA BIRTH CONTROL PILL 3/.03MG BARR LABORATORIES, INC. [Suspect]
     Indication: CONTRACEPTION
     Dosage: 1 PILL ONCE A DAY PO
     Route: 048
     Dates: start: 20090315, end: 20090423
  2. OCELLA BIRTH CONTROL PILL 3/.03MG BARR LABORATORIES, INC. [Suspect]
     Indication: ENDOMETRIOSIS
     Dosage: 1 PILL ONCE A DAY PO
     Route: 048
     Dates: start: 20090315, end: 20090423

REACTIONS (8)
  - CRYING [None]
  - DEPRESSION [None]
  - LETHARGY [None]
  - MOOD ALTERED [None]
  - PARANOIA [None]
  - PERSONALITY CHANGE [None]
  - PRODUCT SUBSTITUTION ISSUE [None]
  - SUICIDAL IDEATION [None]
